FAERS Safety Report 8408173-0 (Version None)
Quarter: 2012Q2

REPORT INFORMATION
  Report Type: 
  Country: None (occurrence: None)
  Receive Date: 20120604
  Receipt Date: 20120405
  Transmission Date: 20120825
  Serious: Yes (Other)
  Sender: FDA-Public Use
  Company Number: CHPA2012US009873

PATIENT
  Age: 67 Year
  Sex: Female

DRUGS (2)
  1. EXCEDRIN (MIGRAINE) [Suspect]
     Indication: PAIN
     Dosage: UNK, UNK
     Route: 048
     Dates: end: 20080101
  2. DRUG THERAPY NOS [Concomitant]
     Indication: BLOOD PRESSURE

REACTIONS (5)
  - NAUSEA [None]
  - CEREBROVASCULAR ACCIDENT [None]
  - INTRACRANIAL ANEURYSM [None]
  - DIARRHOEA [None]
  - MALAISE [None]
